FAERS Safety Report 13230039 (Version 1)
Quarter: 2017Q1

REPORT INFORMATION
  Report Type: Spontaneous
  Country: US (occurrence: US)
  Receive Date: 20170214
  Receipt Date: 20170214
  Transmission Date: 20170428
  Serious: Yes (Hospitalization)
  Sender: FDA-Public Use
  Company Number: US-ROCHE-1892883

PATIENT
  Age: 57 Year
  Sex: Male

DRUGS (1)
  1. ACTILYSE [Suspect]
     Active Substance: ALTEPLASE
     Indication: ISCHAEMIC STROKE
     Route: 042

REACTIONS (5)
  - Generalised tonic-clonic seizure [Unknown]
  - Stroke in evolution [Unknown]
  - Cerebral haemorrhage [Unknown]
  - Cerebellar haemorrhage [Unknown]
  - Brain stem haemorrhage [Unknown]
